APPROVED DRUG PRODUCT: TRANDOLAPRIL
Active Ingredient: TRANDOLAPRIL
Strength: 1MG
Dosage Form/Route: TABLET;ORAL
Application: A078346 | Product #001
Applicant: PHARMOBEDIENT CONSULTING LLC
Approved: Apr 28, 2008 | RLD: No | RS: No | Type: DISCN